FAERS Safety Report 4655132-X (Version None)
Quarter: 2005Q2

REPORT INFORMATION
  Report Type: 
  Country: None (occurrence: None)
  Receive Date: 20050506
  Receipt Date: 20050425
  Transmission Date: 20051028
  Serious: Yes (Life-Threatening, Hospitalization)
  Sender: FDA-Public Use
  Company Number: FR-BRISTOL-MYERS SQUIBB COMPANY-12947388

PATIENT
  Age: 80 Year
  Sex: Male

DRUGS (6)
  1. APROVEL TABS [Suspect]
     Route: 048
  2. ALDACTONE [Suspect]
  3. APRANAX [Suspect]
  4. DIFFU-K [Suspect]
  5. DIAMICRON [Concomitant]
  6. LASILIX [Concomitant]

REACTIONS (4)
  - ARRHYTHMIA [None]
  - HYPERKALAEMIA [None]
  - RENAL FAILURE [None]
  - RESPIRATORY DISTRESS [None]
